FAERS Safety Report 10428669 (Version 3)
Quarter: 2014Q3

REPORT INFORMATION
  Report Type: Report from Study
  Country: CA (occurrence: CA)
  Receive Date: 20140903
  Receipt Date: 20140917
  Transmission Date: 20150326
  Serious: Yes (Other)
  Sender: FDA-Public Use
  Company Number: PHHY2014CA108589

PATIENT
  Sex: Female

DRUGS (4)
  1. VALACICLOVIR [Concomitant]
     Active Substance: VALACYCLOVIR HYDROCHLORIDE
     Dosage: UNK
  2. DESFERAL [Suspect]
     Active Substance: DEFEROXAMINE MESYLATE
     Indication: IRON OVERLOAD
     Dosage: 500 MG TO 1 G BASED ON RENAL FUNCTION)
     Route: 058
     Dates: start: 20140623
  3. JAKAFI [Concomitant]
     Active Substance: RUXOLITINIB
     Dosage: 20 MG, BID
  4. DESFERAL [Suspect]
     Active Substance: DEFEROXAMINE MESYLATE
     Dosage: UNK
     Route: 058
     Dates: end: 20140826

REACTIONS (11)
  - Haemoglobin decreased [Not Recovered/Not Resolved]
  - Vulvovaginal burning sensation [Unknown]
  - Malaise [Unknown]
  - Dyspnoea [Unknown]
  - Infection [Unknown]
  - Joint swelling [Unknown]
  - Endometrial cancer metastatic [Unknown]
  - Dysuria [Unknown]
  - Bowel movement irregularity [Unknown]
  - Constipation [Unknown]
  - Pain [Unknown]
